FAERS Safety Report 4276232-2 (Version None)
Quarter: 2004Q1

REPORT INFORMATION
  Report Type: 
  Country: None (occurrence: None)
  Receive Date: 20040121
  Receipt Date: 20031106
  Transmission Date: 20041129
  Serious: No
  Sender: FDA-Public Use
  Company Number: US-GLAXOSMITHKLINE-A0433262A

PATIENT
  Age: 47 Year

DRUGS (7)
  1. ZIAGEN [Suspect]
     Indication: HIV INFECTION
     Dosage: 1TAB TWICE PER DAY
     Route: 048
     Dates: start: 20031104
  2. ZERIT [Concomitant]
  3. SUSTIVA [Concomitant]
  4. VIREAD [Concomitant]
  5. VIDEX EC [Concomitant]
  6. BACTRIM [Concomitant]
  7. ALBUTEROL [Concomitant]

REACTIONS (4)
  - DISORIENTATION [None]
  - FATIGUE [None]
  - PARAESTHESIA ORAL [None]
  - SWELLING FACE [None]
